FAERS Safety Report 6328475-1 (Version None)
Quarter: 2009Q3

REPORT INFORMATION
  Report Type: 
  Country: None (occurrence: None)
  Receive Date: 20090825
  Receipt Date: 20090701
  Transmission Date: 20100115
  Serious: No
  Sender: FDA-Public Use
  Company Number: US-ABBOTT-09P-163-0582632-00

PATIENT
  Sex: Female
  Weight: 59.02 kg

DRUGS (3)
  1. SYNTHROID [Suspect]
     Indication: BLOOD THYROID STIMULATING HORMONE INCREASED
     Dates: start: 19980101, end: 19980101
  2. SYNTHROID [Suspect]
     Dates: start: 20090101, end: 20090101
  3. LEVOXYL [Concomitant]
     Indication: BLOOD THYROID STIMULATING HORMONE INCREASED

REACTIONS (3)
  - ANXIETY [None]
  - INSOMNIA [None]
  - PALPITATIONS [None]
